FAERS Safety Report 4741824-0 (Version None)
Quarter: 2005Q3

REPORT INFORMATION
  Report Type: 
  Country: None (occurrence: None)
  Receive Date: 20050803
  Receipt Date: 20041015
  Transmission Date: 20060218
  Serious: Yes (Hospitalization)
  Sender: FDA-Public Use
  Company Number: 2004240080US

PATIENT
  Sex: 0

DRUGS (2)
  1. CAMPTOSAR [Suspect]
  2. CETUXIMAB(CETUXIMAB) [Suspect]

REACTIONS (1)
  - GASTROINTESTINAL TOXICITY [None]
